FAERS Safety Report 17842320 (Version 1)
Quarter: 2020Q2

REPORT INFORMATION
  Report Type: Spontaneous
  Country: US (occurrence: US)
  Receive Date: 20200529
  Receipt Date: 20200529
  Transmission Date: 20200714
  Serious: Yes (Other)
  Sender: FDA-Public Use
  Company Number: US-PURDUE PHARMA-USA-2020-0153715

PATIENT

DRUGS (1)
  1. DILAUDID [Suspect]
     Active Substance: HYDROMORPHONE HYDROCHLORIDE
     Indication: PRODUCT USED FOR UNKNOWN INDICATION
     Dosage: UNK
     Route: 048

REACTIONS (8)
  - Liver injury [Unknown]
  - Gallbladder hypofunction [Unknown]
  - Renal impairment [Unknown]
  - Unevaluable event [Unknown]
  - Gastrointestinal disorder [Unknown]
  - Drug dependence [Unknown]
  - Surgery [Unknown]
  - Renal failure [Unknown]
